FAERS Safety Report 6800573-5 (Version None)
Quarter: 2010Q2

REPORT INFORMATION
  Report Type: 
  Country: None (occurrence: None)
  Receive Date: 20100625
  Receipt Date: 20100625
  Transmission Date: 20101027
  Serious: Yes (Hospitalization)
  Sender: FDA-Public Use
  Company Number: None

PATIENT
  Age: 80 Year
  Sex: Male
  Weight: 62.1 kg

DRUGS (3)
  1. WARFARIN SODIUM [Suspect]
     Indication: CARDIOLIPIN ANTIBODY POSITIVE
     Dosage: 30 MG QWEEK PO
     Route: 048
     Dates: start: 20091113, end: 20091218
  2. WARFARIN SODIUM [Suspect]
     Indication: DEEP VEIN THROMBOSIS
     Dosage: 30 MG QWEEK PO
     Route: 048
     Dates: start: 20091113, end: 20091218
  3. SULFAMETHOXAZOLE AND TRIMETHOPRIM [Suspect]
     Indication: POSTOPERATIVE WOUND INFECTION
     Dosage: 1 TAB BID PO
     Route: 048
     Dates: start: 20091215, end: 20091225

REACTIONS (7)
  - ANTICOAGULATION DRUG LEVEL ABOVE THERAPEUTIC [None]
  - ASTHENIA [None]
  - FALL [None]
  - HEAD INJURY [None]
  - HEADACHE [None]
  - INTERNATIONAL NORMALISED RATIO ABNORMAL [None]
  - INTRACRANIAL PRESSURE INCREASED [None]
